FAERS Safety Report 25362968 (Version 2)
Quarter: 2025Q2

REPORT INFORMATION
  Report Type: Report from Study
  Country: US (occurrence: US)
  Receive Date: 20250527
  Receipt Date: 20250604
  Transmission Date: 20250716
  Serious: Yes (Disabling, Other)
  Sender: ACADIA PHARMACEUTICALS
  Company Number: US-ACADIA PHARMACEUTICALS INC.-ACA-2025-PIM-006231

PATIENT
  Sex: Male

DRUGS (25)
  1. NUPLAZID [Suspect]
     Active Substance: PIMAVANSERIN TARTRATE
     Indication: Parkinson^s disease psychosis
     Dosage: 34 MILLIGRAM, QD
     Route: 048
     Dates: start: 20240607
  2. ABILIFY [Concomitant]
     Active Substance: ARIPIPRAZOLE
  3. AMIODARONE [Concomitant]
     Active Substance: AMIODARONE
  4. AMLODIPINE [Concomitant]
     Active Substance: AMLODIPINE BESYLATE
  5. DIALYVITE 3000 [Concomitant]
     Active Substance: .ALPHA.-TOCOPHEROL SUCCINATE, D-\ASCORBIC ACID\BIOTIN\CALCIUM PANTOTHENATE\COBALAMIN\FOLIC ACID\NIAC
  6. DULOXETINE [Concomitant]
     Active Substance: DULOXETINE
  7. DEXTROSE [Concomitant]
     Active Substance: DEXTROSE MONOHYDRATE
  8. LINZESS [Concomitant]
     Active Substance: LINACLOTIDE
  9. MINERALS\VITAMINS [Concomitant]
     Active Substance: MINERALS\VITAMINS
  10. LUTEIN [Concomitant]
     Active Substance: LUTEIN
  11. ROPINIROLE HYDROCHLORIDE [Concomitant]
     Active Substance: ROPINIROLE HYDROCHLORIDE
  12. ROSUVASTATIN [Concomitant]
     Active Substance: ROSUVASTATIN
  13. SEVELAM [Concomitant]
  14. SINEMET [Concomitant]
     Active Substance: CARBIDOPA\LEVODOPA
  15. SYSTANE BALANCE [Concomitant]
     Active Substance: PROPYLENE GLYCOL
  16. TOPROL XL [Concomitant]
     Active Substance: METOPROLOL SUCCINATE
  17. TORSEMIDE [Concomitant]
     Active Substance: TORSEMIDE
  18. VENTOLIN HFA [Concomitant]
     Active Substance: ALBUTEROL SULFATE
  19. VITAMIN B12 [Concomitant]
     Active Substance: CYANOCOBALAMIN
  20. VITAMIN D3 [Concomitant]
     Active Substance: CHOLECALCIFEROL
  21. ZOFRAN [Concomitant]
     Active Substance: ONDANSETRON HYDROCHLORIDE
  22. MIRALAX [Concomitant]
     Active Substance: POLYETHYLENE GLYCOL 3350
  23. MODAFINIL [Concomitant]
     Active Substance: MODAFINIL
  24. ONDANSETRON HYDROCHLORIDE [Concomitant]
     Active Substance: ONDANSETRON HYDROCHLORIDE
  25. OXYBUTYNIN [Concomitant]
     Active Substance: OXYBUTYNIN

REACTIONS (3)
  - Renal failure [Not Recovered/Not Resolved]
  - Hallucination [Recovering/Resolving]
  - Memory impairment [Not Recovered/Not Resolved]
